FAERS Safety Report 23154757 (Version 1)
Quarter: 2023Q4

REPORT INFORMATION
  Report Type: Spontaneous
  Country: None (occurrence: FR)
  Receive Date: 20231107
  Receipt Date: 20231107
  Transmission Date: 20240109
  Serious: Yes (Other)
  Sender: FDA-Public Use
  Company Number: FR-B.Braun Medical Inc.-2147938

PATIENT
  Age: 70 Year
  Sex: Female
  Weight: 68 kg

DRUGS (4)
  1. LIDOCAINE HYDROCHLORIDE [Suspect]
     Active Substance: DEXTROSE MONOHYDRATE\EPINEPHRINE\EPINEPHRINE BITARTRATE\LIDOCAINE\LIDOCAINE HYDROCHLORIDE\LIDOCAINE
     Indication: Periarthritis
     Route: 035
  2. PREDNISONE [Suspect]
     Active Substance: PREDNISONE
  3. TRIAMCINOLONE [Suspect]
     Active Substance: TRIAMCINOLONE
  4. FLECAINIDE ACETATE [Concomitant]
     Active Substance: FLECAINIDE ACETATE

REACTIONS (4)
  - Neck pain [None]
  - Erythema [None]
  - Hypertensive crisis [None]
  - Off label use [None]
